FAERS Safety Report 8840865 (Version 1)
Quarter: 2012Q4

REPORT INFORMATION
  Report Type: Report from Study
  Country: US (occurrence: US)
  Receive Date: 20121015
  Receipt Date: 20121015
  Transmission Date: 20130627
  Serious: Yes (Hospitalization)
  Sender: FDA-Public Use
  Company Number: US-ROCHE-1141758

PATIENT
  Age: 67 Year
  Sex: Female
  Weight: 75 kg

DRUGS (11)
  1. BEVACIZUMAB [Suspect]
     Indication: NON-SMALL CELL LUNG CANCER
     Route: 042
  2. CLONIDINE [Concomitant]
     Route: 065
  3. FRUSEMIDE [Concomitant]
  4. IRBESARTAN [Concomitant]
     Route: 065
  5. LORAZEPAM [Concomitant]
  6. ATENOLOL [Concomitant]
     Route: 065
  7. MUCINEX [Concomitant]
  8. ALLEGRA [Concomitant]
     Route: 065
  9. ASPIRIN [Concomitant]
     Route: 065
  10. ZOCOR [Concomitant]
     Route: 065
  11. LORTAB [Concomitant]

REACTIONS (3)
  - Headache [Recovered/Resolved]
  - Confusional state [Recovered/Resolved]
  - Blood pressure increased [Recovered/Resolved]
